FAERS Safety Report 12824317 (Version 1)
Quarter: 2016Q4

REPORT INFORMATION
  Report Type: Report from Study
  Country: US (occurrence: US)
  Receive Date: 20161006
  Receipt Date: 20161006
  Transmission Date: 20170207
  Serious: Yes (Hospitalization, Other)
  Sender: FDA-Public Use
  Company Number: US-JNJFOC-20160926507

PATIENT
  Age: 76 Year
  Sex: Male

DRUGS (8)
  1. LIPITOR [Concomitant]
     Active Substance: ATORVASTATIN CALCIUM
  2. FLOMAX [Concomitant]
     Active Substance: TAMSULOSIN HYDROCHLORIDE
  3. FLECAINIDE [Concomitant]
     Active Substance: FLECAINIDE
  4. IMBRUVICA [Suspect]
     Active Substance: IBRUTINIB
     Indication: CHRONIC LYMPHOCYTIC LEUKAEMIA
     Route: 048
     Dates: start: 20160729, end: 20160906
  5. TOPROL XL [Concomitant]
     Active Substance: METOPROLOL SUCCINATE
  6. METAMUCIL [Concomitant]
     Active Substance: PLANTAGO SEED
  7. XARELTO [Suspect]
     Active Substance: RIVAROXABAN
     Indication: ATRIAL FIBRILLATION
     Dates: start: 20160823
  8. CARDIZEM [Concomitant]
     Active Substance: DILTIAZEM HYDROCHLORIDE

REACTIONS (6)
  - Atrial fibrillation [Unknown]
  - Surgery [Unknown]
  - Musculoskeletal pain [Not Recovered/Not Resolved]
  - Haemorrhagic hepatic cyst [Unknown]
  - Abdominal pain upper [Recovering/Resolving]
  - Heart rate increased [Unknown]

NARRATIVE: CASE EVENT DATE: 201608
